FAERS Safety Report 21070694 (Version 1)
Quarter: 2022Q3

REPORT INFORMATION
  Report Type: Spontaneous
  Country: US (occurrence: US)
  Receive Date: 20220712
  Receipt Date: 20220712
  Transmission Date: 20221026
  Serious: No
  Sender: FDA-Public Use
  Company Number: US-MYLANLABS-2022M1051461

PATIENT
  Age: 38 Year
  Sex: Female
  Weight: 86.64 kg

DRUGS (2)
  1. DEXAMETHASONE [Suspect]
     Active Substance: DEXAMETHASONE
     Indication: Myositis
     Dosage: 2 MILLIGRAM
     Route: 030
  2. DEXAMETHASONE [Suspect]
     Active Substance: DEXAMETHASONE
     Indication: Arthralgia

REACTIONS (6)
  - Anxiety [Unknown]
  - Nausea [Unknown]
  - Feeling hot [Unknown]
  - Limb discomfort [Unknown]
  - Headache [Unknown]
  - Expired product administered [Unknown]

NARRATIVE: CASE EVENT DATE: 20220701
